FAERS Safety Report 17380719 (Version 1)
Quarter: 2020Q1

REPORT INFORMATION
  Report Type: Spontaneous
  Country: JP (occurrence: JP)
  Receive Date: 20200206
  Receipt Date: 20200206
  Transmission Date: 20200409
  Serious: Yes (Death)
  Sender: FDA-Public Use
  Company Number: JP-ELI_LILLY_AND_COMPANY-JP202002000611

PATIENT
  Age: 65 Year

DRUGS (4)
  1. G LASTA [Concomitant]
     Active Substance: PEGFILGRASTIM
  2. NARUSUS [Concomitant]
     Active Substance: HYDROMORPHONE HYDROCHLORIDE
  3. CYRAMZA [Suspect]
     Active Substance: RAMUCIRUMAB
     Indication: PRODUCT USED FOR UNKNOWN INDICATION
     Route: 041
  4. DOCETAXEL. [Concomitant]
     Active Substance: DOCETAXEL

REACTIONS (1)
  - Pneumonia [Fatal]

NARRATIVE: CASE EVENT DATE: 2019
